FAERS Safety Report 15463087 (Version 1)
Quarter: 2018Q4

REPORT INFORMATION
  Report Type: Spontaneous
  Country: US (occurrence: US)
  Receive Date: 20181001
  Receipt Date: 20181001
  Transmission Date: 20190204
  Serious: Yes (Life-Threatening)
  Sender: FDA-Public Use
  Company Number: None

PATIENT
  Age: 65 Year
  Sex: Female

DRUGS (1)
  1. COPAXONE [Suspect]
     Active Substance: GLATIRAMER ACETATE
     Indication: MULTIPLE SCLEROSIS
     Dosage: ?          OTHER FREQUENCY:OTHER;?
     Route: 058
     Dates: start: 201809, end: 201809

REACTIONS (9)
  - Gait inability [None]
  - Urinary incontinence [None]
  - Musculoskeletal stiffness [None]
  - Cheilitis [None]
  - Chills [None]
  - Pyrexia [None]
  - Vomiting [None]
  - Pain [None]
  - Vaginal ulceration [None]

NARRATIVE: CASE EVENT DATE: 20180927
